FAERS Safety Report 6173344-3 (Version None)
Quarter: 2009Q2

REPORT INFORMATION
  Report Type: 
  Country: None (occurrence: None)
  Receive Date: 20090430
  Receipt Date: 20090424
  Transmission Date: 20091009
  Serious: Yes (Hospitalization)
  Sender: FDA-Public Use
  Company Number: US-PURDUE-USA_2009_0038001

PATIENT
  Age: 50 Year
  Sex: Male

DRUGS (4)
  1. OXYCONTIN [Suspect]
     Indication: DRUG USE FOR UNKNOWN INDICATION
     Dosage: UNK MG, UNK
     Route: 048
  2. OXYCODONE HCL [Suspect]
     Indication: DRUG USE FOR UNKNOWN INDICATION
     Dosage: UNK MG, UNK
     Route: 048
  3. AMITIZA [Concomitant]
     Indication: CONSTIPATION
     Dosage: UNK, UNK
  4. MIRALAX [Concomitant]
     Indication: CONSTIPATION
     Dosage: UNK, UNK

REACTIONS (2)
  - FAECALOMA [None]
  - MUSCLE SPASMS [None]
